FAERS Safety Report 17974548 (Version 1)
Quarter: 2020Q3

REPORT INFORMATION
  Report Type: Spontaneous
  Country: US (occurrence: US)
  Receive Date: 20200702
  Receipt Date: 20200702
  Transmission Date: 20201103
  Serious: Yes (Hospitalization)
  Sender: FDA-Public Use
  Company Number: None

PATIENT
  Sex: Female

DRUGS (26)
  1. BENLYSTA [Suspect]
     Active Substance: BELIMUMAB
     Indication: SYSTEMIC LUPUS ERYTHEMATOSUS
     Dosage: ?          OTHER FREQUENCY:Q WEEK;?
     Route: 058
     Dates: start: 20191018
  2. CONAZEP [Concomitant]
  3. GABAPENTIN. [Concomitant]
     Active Substance: GABAPENTIN
  4. ROSUVASTATIN. [Concomitant]
     Active Substance: ROSUVASTATIN
  5. SUMATRIPTAN. [Concomitant]
     Active Substance: SUMATRIPTAN
  6. HYDROXYCHLOR [Concomitant]
     Active Substance: HYDROXYCHLOROQUINE
  7. SLOW?MAG [Concomitant]
     Active Substance: MAGNESIUM CHLORIDE
  8. AMILORIDE [Concomitant]
     Active Substance: AMILORIDE
  9. BREO ELLIPTA [Concomitant]
     Active Substance: FLUTICASONE FUROATE\VILANTEROL TRIFENATATE
  10. FOLIC ACID. [Concomitant]
     Active Substance: FOLIC ACID
  11. NABUMETONE. [Concomitant]
     Active Substance: NABUMETONE
  12. PREDNISONE. [Concomitant]
     Active Substance: PREDNISONE
  13. VENLAFAXINE [Concomitant]
     Active Substance: VENLAFAXINE HYDROCHLORIDE
  14. ADZENYS [Concomitant]
  15. BUPROPION. [Concomitant]
     Active Substance: BUPROPION
  16. LEFLUNOMIDE. [Concomitant]
     Active Substance: LEFLUNOMIDE
  17. TRAZODONE [Concomitant]
     Active Substance: TRAZODONE HYDROCHLORIDE
  18. ONDANSETRON [Concomitant]
     Active Substance: ONDANSETRON
  19. OXYCODONE [Concomitant]
     Active Substance: OXYCODONE
  20. PANTOPRAZOLE [Concomitant]
     Active Substance: PANTOPRAZOLE
  21. RELISTOR [Concomitant]
     Active Substance: METHYLNALTREXONE BROMIDE
  22. ALBUTEROL. [Concomitant]
     Active Substance: ALBUTEROL
  23. DICYCLOMINE [Concomitant]
     Active Substance: DICYCLOMINE HYDROCHLORIDE
  24. LEVOTHYROXIN [Concomitant]
     Active Substance: LEVOTHYROXINE
  25. NITROFURANTN [Concomitant]
     Active Substance: NITROFURANTOIN
  26. TIZANIDINE. [Concomitant]
     Active Substance: TIZANIDINE

REACTIONS (3)
  - Fatigue [None]
  - Headache [None]
  - Intentional dose omission [None]
